FAERS Safety Report 20921513 (Version 1)
Quarter: 2022Q2

REPORT INFORMATION
  Report Type: Spontaneous
  Country: BR (occurrence: BR)
  Receive Date: 20220606
  Receipt Date: 20220606
  Transmission Date: 20220720
  Serious: Yes (Other)
  Sender: FDA-Public Use
  Company Number: BR-ANIPHARMA-2022-BR-000038

PATIENT
  Sex: Male

DRUGS (1)
  1. ATACAND [Suspect]
     Active Substance: CANDESARTAN CILEXETIL
     Indication: Product used for unknown indication
     Dosage: 8 MG UNK / 16 MG UNK
     Route: 048

REACTIONS (2)
  - Myocardial infarction [Unknown]
  - Cardiac dysfunction [Not Recovered/Not Resolved]
